FAERS Safety Report 5382076-0 (Version None)
Quarter: 2007Q2

REPORT INFORMATION
  Report Type: 
  Country: None (occurrence: None)
  Receive Date: 20070629
  Receipt Date: 20070419
  Transmission Date: 20071010
  Serious: Yes (Death)
  Sender: FDA-Public Use
  Company Number: PHEH2007US05077

PATIENT
  Age: 69 Year
  Sex: Female

DRUGS (1)
  1. EXJADE [Suspect]
     Indication: IRON OVERLOAD
     Dosage: 1375 MG, QD, ORAL
     Route: 048
     Dates: start: 20070316

REACTIONS (2)
  - ACUTE LEUKAEMIA [None]
  - DISEASE PROGRESSION [None]
